FAERS Safety Report 8525065-7 (Version None)
Quarter: 2012Q3

REPORT INFORMATION
  Report Type: 
  Country: None (occurrence: None)
  Receive Date: 20120720
  Receipt Date: 20120713
  Transmission Date: 20120928
  Serious: Yes (Hospitalization, Other)
  Sender: FDA-Public Use
  Company Number: US-BAXTER-2012BAX010536

PATIENT
  Sex: Male

DRUGS (1)
  1. DIANEAL PD-2 W/ DEXTROSE 1.5% [Suspect]
     Indication: PERITONEAL DIALYSIS
     Route: 033

REACTIONS (5)
  - ASTHENIA [None]
  - ULTRAFILTRATION FAILURE [None]
  - CONFUSIONAL STATE [None]
  - HYPERKALAEMIA [None]
  - METABOLIC ENCEPHALOPATHY [None]
